FAERS Safety Report 11794348 (Version 2)
Quarter: 2016Q1

REPORT INFORMATION
  Report Type: Spontaneous
  Country: US (occurrence: US)
  Receive Date: 20151202
  Receipt Date: 20160225
  Transmission Date: 20160525
  Serious: Yes (Other)
  Sender: FDA-Public Use
  Company Number: US-CELGENE-USA-2015116133

PATIENT

DRUGS (3)
  1. POMALYST [Suspect]
     Active Substance: POMALIDOMIDE
     Indication: PLASMA CELL MYELOMA
     Route: 048
  2. DEXAMETHASONE. [Suspect]
     Active Substance: DEXAMETHASONE
     Indication: PLASMA CELL MYELOMA
     Route: 065
  3. PEMBROLIZUMAB. [Suspect]
     Active Substance: PEMBROLIZUMAB
     Indication: PLASMA CELL MYELOMA
     Route: 041

REACTIONS (23)
  - Hyperglycaemia [Unknown]
  - Hyperthyroidism [Unknown]
  - Pneumonitis [Unknown]
  - Dyspnoea [Unknown]
  - Muscle spasms [Unknown]
  - Oedema [Unknown]
  - Thrombocytopenia [Unknown]
  - Pneumonia [Unknown]
  - Plasma cell myeloma [Unknown]
  - Fatigue [Unknown]
  - Neutropenia [Unknown]
  - Pruritus [Unknown]
  - Rash [Unknown]
  - Hypoglycaemia [Unknown]
  - Infection [Unknown]
  - Transaminases increased [Unknown]
  - Constipation [Unknown]
  - Palpitations [Unknown]
  - Lymphopenia [Unknown]
  - Hypothyroidism [Unknown]
  - Autoimmune hepatitis [Unknown]
  - Hypotension [Unknown]
  - Pyrexia [Unknown]
